FAERS Safety Report 5315387-5 (Version None)
Quarter: 2007Q2

REPORT INFORMATION
  Report Type: 
  Country: None (occurrence: None)
  Receive Date: 20070503
  Receipt Date: 20070424
  Transmission Date: 20071010
  Serious: Yes (Other)
  Sender: FDA-Public Use
  Company Number: PHBS2007JP07241

PATIENT

DRUGS (1)
  1. VOLTAREN [Suspect]
     Route: 048

REACTIONS (1)
  - URINARY RETENTION [None]
